FAERS Safety Report 14109923 (Version 1)
Quarter: 2017Q4

REPORT INFORMATION
  Report Type: Spontaneous
  Country: US (occurrence: US)
  Receive Date: 20171020
  Receipt Date: 20171020
  Transmission Date: 20180321
  Serious: No
  Sender: FDA-Public Use
  Company Number: US-TEVA-788435ACC

PATIENT
  Age: 48 Year
  Sex: Female
  Weight: 84.9 kg

DRUGS (1)
  1. MICONAZOLE 3 COMBINATION PACK [Suspect]
     Active Substance: MICONAZOLE NITRATE
     Dates: start: 20170625, end: 20170626

REACTIONS (2)
  - Product solubility abnormal [None]
  - Drug ineffective [Unknown]
